FAERS Safety Report 5153327-2 (Version None)
Quarter: 2006Q4

REPORT INFORMATION
  Report Type: 
  Country: None (occurrence: None)
  Receive Date: 20061116
  Receipt Date: 20061116
  Transmission Date: 20070319
  Serious: Yes (Hospitalization)
  Sender: FDA-Public Use
  Company Number: None

PATIENT
  Age: 58 Year
  Sex: Male
  Weight: 85.3 kg

DRUGS (4)
  1. HEPARIN [Suspect]
     Indication: PROPHYLAXIS
     Dosage: 1000 UNITS/HR  DRIP RATE  IV
     Route: 042
     Dates: start: 20060727, end: 20060729
  2. AMIODARONE HCL [Concomitant]
  3. ZOSYN [Concomitant]
  4. DILTIAZEM HCL [Concomitant]

REACTIONS (2)
  - ANTIBODY TEST POSITIVE [None]
  - HEPARIN-INDUCED THROMBOCYTOPENIA [None]
